FAERS Safety Report 19383690 (Version 12)
Quarter: 2025Q1

REPORT INFORMATION
  Report Type: Spontaneous
  Country: US (occurrence: US)
  Receive Date: 20210607
  Receipt Date: 20250306
  Transmission Date: 20250409
  Serious: No
  Sender: PFIZER
  Company Number: US-PFIZER INC-2019365265

PATIENT
  Age: 61 Year
  Sex: Female
  Weight: 90.72 kg

DRUGS (5)
  1. PREMARIN [Suspect]
     Active Substance: ESTROGENS, CONJUGATED
     Indication: Lichen sclerosus
     Dosage: DAILY (PLACE VAGINALLY DAILY)
     Route: 067
  2. PREMARIN [Suspect]
     Active Substance: ESTROGENS, CONJUGATED
     Indication: Genital labial adhesions
     Dosage: 2 G, 2X/WEEK (AT BEDTIME)
     Route: 067
  3. PREMARIN [Suspect]
     Active Substance: ESTROGENS, CONJUGATED
     Indication: Vulvitis
     Dosage: 0.5 EVERY NIGHT
     Route: 067
  4. PREMARIN [Suspect]
     Active Substance: ESTROGENS, CONJUGATED
     Indication: Atrophic vulvovaginitis
     Dosage: 2 G, 2X/WEEK (AT BEDTIME)
     Route: 067
  5. PREMARIN [Suspect]
     Active Substance: ESTROGENS, CONJUGATED
     Dosage: 2 G, 2X/WEEK EVERY NIGHT AT BEDTIME
     Route: 067

REACTIONS (5)
  - Panic reaction [Unknown]
  - Memory impairment [Unknown]
  - Product prescribing error [Unknown]
  - Off label use [Unknown]
  - Intentional dose omission [Unknown]
